FAERS Safety Report 6470393-2 (Version None)
Quarter: 2009Q4

REPORT INFORMATION
  Report Type: 
  Country: None (occurrence: None)
  Receive Date: 20091203
  Receipt Date: 20091130
  Transmission Date: 20100525
  Serious: Yes (Disabling)
  Sender: FDA-Public Use
  Company Number: GB-PFIZER INC-2008091441

PATIENT
  Age: 62 Year
  Sex: Male

DRUGS (11)
  1. ATORVASTATIN [Suspect]
     Indication: HYPERLIPIDAEMIA
     Route: 048
     Dates: start: 20080707, end: 20080806
  2. BENDROFLUMETHIAZIDE [Concomitant]
     Dosage: 2.5 MG, 1X/DAY
  3. BISOPROLOL FUMARATE [Concomitant]
     Dosage: 10 MG, 1X/DAY
  4. DEXAMFETAMINE SULFATE [Concomitant]
     Dosage: 15 MG, 2X/DAY
  5. FELODIPINE [Concomitant]
     Dosage: 2.5 MG, 1X/DAY
  6. HYOSCINE BUTYLBROMIDE [Concomitant]
     Dosage: 10 MG, 3X/DAY
  7. LISINOPRIL [Concomitant]
     Dosage: 20 MG, 1X/DAY
  8. OMEPRAZOLE [Concomitant]
     Dosage: 20 MG, 1X/DAY
  9. PARACETAMOL [Concomitant]
     Dosage: 500 MG, AS NEEDED
  10. PROPAFENONE HYDROCHLORIDE [Concomitant]
     Dosage: 150 MG, 3X/DAY
  11. SIMVASTATIN [Concomitant]
     Dosage: 40 MG, 1X/DAY

REACTIONS (5)
  - ASTHENIA [None]
  - FATIGUE [None]
  - HEARING IMPAIRED [None]
  - NAUSEA [None]
  - VISUAL IMPAIRMENT [None]
